FAERS Safety Report 7604228-9 (Version None)
Quarter: 2011Q3

REPORT INFORMATION
  Report Type: 
  Country: None (occurrence: None)
  Receive Date: 20110712
  Receipt Date: 20110705
  Transmission Date: 20111222
  Serious: Yes (Life-Threatening, Hospitalization)
  Sender: FDA-Public Use
  Company Number: JP-GLAXOSMITHKLINE-B0252869A

PATIENT
  Sex: Male
  Weight: 70.5 kg

DRUGS (3)
  1. PAXIL [Suspect]
     Indication: DEPRESSION
     Route: 048
     Dates: start: 20010619, end: 20010716
  2. ETIZOLAM [Concomitant]
     Indication: ANXIETY
     Dosage: .5MG PER DAY
     Route: 048
     Dates: start: 20010602, end: 20010718
  3. DIAZEPAM [Concomitant]
     Indication: INSOMNIA
     Dosage: 5MG PER DAY
     Route: 048
     Dates: start: 20010602, end: 20010718

REACTIONS (3)
  - VENTRICULAR FIBRILLATION [None]
  - CONDITION AGGRAVATED [None]
  - BRUGADA SYNDROME [None]
